FAERS Safety Report 21455556 (Version 1)
Quarter: 2022Q4

REPORT INFORMATION
  Report Type: Spontaneous
  Country: US (occurrence: US)
  Receive Date: 20221014
  Receipt Date: 20221014
  Transmission Date: 20230113
  Serious: No
  Sender: FDA-Public Use
  Company Number: US-SANOFI-01308386

PATIENT
  Sex: Female

DRUGS (2)
  1. DUPIXENT [Suspect]
     Active Substance: DUPILUMAB
     Indication: Rash
     Dosage: LOADING DOSE (1X)
  2. HUMIRA [Concomitant]
     Active Substance: ADALIMUMAB
     Dosage: USUALLY TAKES HUMIRA ON WEDNESDAYS

REACTIONS (1)
  - Product use in unapproved indication [Unknown]
